FAERS Safety Report 25814305 (Version 1)
Quarter: 2025Q3

REPORT INFORMATION
  Report Type: Report from Study
  Country: US (occurrence: US)
  Receive Date: 20250917
  Receipt Date: 20250917
  Transmission Date: 20251020
  Serious: Yes (Hospitalization, Other)
  Sender: ABBVIE
  Company Number: US-ABBVIE-6339284

PATIENT
  Age: 47 Year
  Sex: Male

DRUGS (1)
  1. SKYRIZI [Suspect]
     Active Substance: RISANKIZUMAB-RZAA
     Indication: Psoriasis
     Route: 058

REACTIONS (6)
  - Localised infection [Not Recovered/Not Resolved]
  - Ankle operation [Unknown]
  - Surgical failure [Unknown]
  - Tendonitis [Unknown]
  - Psoriasis [Unknown]
  - Tendon dislocation [Unknown]

NARRATIVE: CASE EVENT DATE: 20241216
